FAERS Safety Report 22279212 (Version 1)
Quarter: 2023Q2

REPORT INFORMATION
  Report Type: Spontaneous
  Country: US (occurrence: US)
  Receive Date: 20230503
  Receipt Date: 20230503
  Transmission Date: 20230722
  Serious: No
  Sender: FDA-Public Use
  Company Number: US-BAYER-2023A060677

PATIENT
  Age: 53 Year
  Sex: Female

DRUGS (1)
  1. ASTEPRO [Suspect]
     Active Substance: AZELASTINE HYDROCHLORIDE
     Dosage: 1ST DAY 2 SPRAYS EACH NOSTRIL
     Dates: start: 20230424, end: 20230425

REACTIONS (1)
  - Drug ineffective [None]
